FAERS Safety Report 10268508 (Version 1)
Quarter: 2014Q2

REPORT INFORMATION
  Report Type: Spontaneous
  Country: US (occurrence: None)
  Receive Date: 20140627
  Receipt Date: 20140627
  Transmission Date: 20141212
  Serious: Yes (Disabling)
  Sender: FDA-Public Use
  Company Number: None

PATIENT
  Age: 56 Year
  Sex: Female
  Weight: 63.5 kg

DRUGS (1)
  1. LAMISIL [Suspect]
     Indication: ONYCHOMYCOSIS
     Dosage: ONE PILL, ONCE DAILY, TAKEN BY MOUTH
     Route: 048
     Dates: start: 20050501, end: 20050630

REACTIONS (9)
  - Oropharyngeal pain [None]
  - Dysgeusia [None]
  - Gait disturbance [None]
  - Pain [None]
  - Plantar fasciitis [None]
  - Neuropathy peripheral [None]
  - Decreased activity [None]
  - Quality of life decreased [None]
  - No therapeutic response [None]
